FAERS Safety Report 7151900-3 (Version None)
Quarter: 2010Q4

REPORT INFORMATION
  Report Type: 
  Country: None (occurrence: None)
  Receive Date: 20101210
  Receipt Date: 20101130
  Transmission Date: 20110411
  Serious: Yes (Other)
  Sender: FDA-Public Use
  Company Number: DE-GENENTECH-309946

PATIENT
  Sex: Female
  Weight: 75 kg

DRUGS (5)
  1. MABTHERA [Suspect]
     Indication: B-CELL LYMPHOMA
     Dosage: 375 MG/KG, UNK
     Route: 042
     Dates: start: 20100101, end: 20100701
  2. BENDAMUSTINE [Suspect]
     Indication: B-CELL LYMPHOMA
     Dosage: 90 MG/M2, UNK
     Route: 042
     Dates: start: 20100101
  3. FENISTIL [Concomitant]
     Indication: ALLERGY PROPHYLAXIS
     Dosage: UNK
     Route: 042
     Dates: start: 20100701
  4. PANTOZOL [Concomitant]
     Indication: ANTACID THERAPY
     Dosage: UNK
     Route: 048
     Dates: start: 20100701
  5. LEVOTHYROXINE SODIUM [Concomitant]
     Indication: HYPOTHYROIDISM
     Dosage: UNK
     Route: 048

REACTIONS (2)
  - COUGH [None]
  - LUNG DISORDER [None]
